FAERS Safety Report 7692281-6 (Version None)
Quarter: 2011Q3

REPORT INFORMATION
  Report Type: 
  Country: None (occurrence: None)
  Receive Date: 20110818
  Receipt Date: 20110805
  Transmission Date: 20111222
  Serious: Yes (Hospitalization)
  Sender: FDA-Public Use
  Company Number: NL-MYLANLABS-2011S1016375

PATIENT
  Age: 60 Year
  Sex: Male
  Weight: 60 kg

DRUGS (11)
  1. ROSUVASTATIN [Interacting]
     Indication: HYPERLIPIDAEMIA
     Dosage: 40MG (FREQUENCY NOT STATED)
     Route: 065
  2. TAMSULOSIN HCL [Concomitant]
     Dosage: 0.4 MG DAILY
     Route: 065
  3. ASPIRIN [Concomitant]
     Dosage: 80MG DAILY
     Route: 065
  4. GABAPENTIN [Concomitant]
     Dosage: 400 MG THREE TIMES DAILY
     Route: 065
  5. GEMFIBROZIL [Suspect]
     Indication: HYPERCHOLESTEROLAEMIA
     Dosage: 600MG TWICE DAILY
     Route: 065
  6. LOPINAVIR/RITONAVIR [Interacting]
     Indication: HIV INFECTION
     Dosage: 400/100MG TWICE DAILY
     Route: 065
  7. AMITRIPTYLINE HCL [Concomitant]
     Dosage: 25MG TWICE DAILY
     Route: 065
  8. TENOFOVIR DISOPROXIL FUMARATE [Interacting]
     Indication: HIV INFECTION
     Dosage: 245MG EVERY OTHER DAY
     Route: 065
  9. TRAMADOL HCL [Concomitant]
     Dosage: 50MG THREE TIMES DAILY
     Route: 065
  10. ABACAVIR [Concomitant]
     Indication: HIV INFECTION
     Dosage: 300 MG TWICE DAILY
     Route: 065
  11. CIPROFLOXACIN [Concomitant]
     Indication: URINARY TRACT INFECTION
     Dosage: 500MG TWICE DAILY
     Route: 065

REACTIONS (2)
  - RHABDOMYOLYSIS [None]
  - DRUG INTERACTION [None]
